FAERS Safety Report 7673470-3 (Version None)
Quarter: 2011Q3

REPORT INFORMATION
  Report Type: 
  Country: None (occurrence: None)
  Receive Date: 20110810
  Receipt Date: 20110803
  Transmission Date: 20111222
  Serious: No
  Sender: FDA-Public Use
  Company Number: US-PFIZER INC-2011178310

PATIENT
  Sex: Male

DRUGS (10)
  1. KLONOPIN [Concomitant]
  2. LASIX [Concomitant]
  3. DEPAKOTE [Concomitant]
  4. COREG [Concomitant]
  5. SYNTHROID [Concomitant]
  6. TIKOSYN [Suspect]
     Dosage: UNK
  7. ACCUPRIL [Concomitant]
  8. SPIRONOLACTONE [Concomitant]
  9. PRAVASTATIN [Concomitant]
  10. ALLOPURINOL [Concomitant]

REACTIONS (2)
  - SKIN BURNING SENSATION [None]
  - PAIN [None]
